FAERS Safety Report 4492651-3 (Version None)
Quarter: 2004Q4

REPORT INFORMATION
  Report Type: 
  Country: None (occurrence: None)
  Receive Date: 20041028
  Receipt Date: 20041019
  Transmission Date: 20050328
  Serious: Yes (Hospitalization)
  Sender: FDA-Public Use
  Company Number: E2004-03093

PATIENT
  Age: 2 Year
  Sex: Male

DRUGS (1)
  1. TUBERSOL [Suspect]
     Indication: TUBERCULIN TEST
     Dates: start: 20040913

REACTIONS (4)
  - CYTOLYTIC HEPATITIS [None]
  - GRAND MAL CONVULSION [None]
  - HYPOTONIA [None]
  - LOSS OF CONSCIOUSNESS [None]
